FAERS Safety Report 6261496-6 (Version None)
Quarter: 2009Q3

REPORT INFORMATION
  Report Type: 
  Country: None (occurrence: None)
  Receive Date: 20090702
  Receipt Date: 20090410
  Transmission Date: 20100115
  Serious: No
  Sender: FDA-Public Use
  Company Number: 1000005751

PATIENT
  Age: 72 Year
  Sex: Male

DRUGS (11)
  1. BYSTOLIC [Suspect]
     Indication: ANGIOPLASTY
     Dosage: 5 MG (5 MG, 1 IN 1 D),ORAL
     Route: 048
     Dates: start: 20090328, end: 20090330
  2. BYSTOLIC [Suspect]
     Indication: STENT PLACEMENT
     Dosage: 5 MG (5 MG, 1 IN 1 D),ORAL
     Route: 048
     Dates: start: 20090328, end: 20090330
  3. PLAVIX [Suspect]
     Indication: ANGIOPLASTY
     Dates: start: 20090327
  4. PLAVIX [Suspect]
     Indication: STENT PLACEMENT
     Dates: start: 20090327
  5. LISINOPRIL [Concomitant]
  6. ATENOLOL [Concomitant]
  7. VITAMINS (NOS) [Concomitant]
  8. MAGNESIUM [Concomitant]
  9. FOLATE [Concomitant]
  10. VITAMIN B-12 [Concomitant]
  11. SUPPLEMENTS (NOS) [Concomitant]

REACTIONS (5)
  - CONSTIPATION [None]
  - DIARRHOEA [None]
  - ERYTHEMA [None]
  - FLATULENCE [None]
  - PRURITUS [None]
